FAERS Safety Report 5255093-9 (Version None)
Quarter: 2007Q1

REPORT INFORMATION
  Report Type: 
  Country: None (occurrence: None)
  Receive Date: 20070305
  Receipt Date: 20070221
  Transmission Date: 20070707
  Serious: Yes (Other)
  Sender: FDA-Public Use
  Company Number: PHBS2007JP03523

PATIENT
  Age: 15 Year
  Sex: Female

DRUGS (3)
  1. TACROLIMUS [Suspect]
     Route: 065
  2. OCTREOTIDE ACETATE [Suspect]
     Route: 065
  3. CYCLOSPORINE [Suspect]
     Route: 065

REACTIONS (10)
  - CONVULSION [None]
  - CYTOMEGALOVIRUS CHORIORETINITIS [None]
  - DEPRESSED LEVEL OF CONSCIOUSNESS [None]
  - DIARRHOEA HAEMORRHAGIC [None]
  - HAEMORRHAGE [None]
  - HISTIOCYTOSIS HAEMATOPHAGIC [None]
  - PYREXIA [None]
  - SHOCK HAEMORRHAGIC [None]
  - SKIN EROSION [None]
  - WHITE BLOOD CELL COUNT DECREASED [None]
